FAERS Safety Report 10415074 (Version 1)
Quarter: 2014Q2

REPORT INFORMATION
  Report Type: Spontaneous
  Country: US (occurrence: None)
  Receive Date: 20140604
  Receipt Date: 20140604
  Transmission Date: 20141212
  Serious: No
  Sender: FDA-Public Use
  Company Number: 163-POMAL-14024259

PATIENT
  Age: 65 Year
  Sex: Female
  Weight: 81.6 kg

DRUGS (6)
  1. POMALYST (POMALIDOMIDE) (3 MILLIGRAM, CAPSULES) [Suspect]
     Indication: PLASMA CELL MYELOMA
     Dosage: 21 IN 21 D
     Route: 048
     Dates: start: 20131127
  2. LORAZEPAM [Concomitant]
  3. TRAZODONE [Concomitant]
  4. ASPIRIN EC (ACETYLSALICYLIC ACID) [Concomitant]
  5. POTASSIUM CHLORIDE [Concomitant]
  6. CYMBALTA (DULOXETINE HYDROCHLORIDE) [Concomitant]

REACTIONS (1)
  - Adverse drug reaction [None]
